FAERS Safety Report 5134006-4 (Version None)
Quarter: 2006Q4

REPORT INFORMATION
  Report Type: 
  Country: None (occurrence: None)
  Receive Date: 20061023
  Receipt Date: 20061023
  Transmission Date: 20070319
  Serious: Yes (Life-Threatening)
  Sender: FDA-Public Use
  Company Number: None

PATIENT
  Sex: Male

DRUGS (2)
  1. OMNISCAN [Suspect]
     Indication: SUBCLAVIAN ARTERY THROMBOSIS
     Dosage: 30 CC 1 IV BOLUS
     Route: 040
     Dates: start: 20050721, end: 20050721
  2. OMNISCAN [Suspect]
     Indication: SUBCLAVIAN VEIN THROMBOSIS
     Dosage: 30 CC 1 IV BOLUS
     Route: 040
     Dates: start: 20050721, end: 20050721

REACTIONS (1)
  - NEPHROGENIC FIBROSING DERMOPATHY [None]
